FAERS Safety Report 10239561 (Version 1)
Quarter: 2014Q2

REPORT INFORMATION
  Report Type: Spontaneous
  Country: US (occurrence: US)
  Receive Date: 20140616
  Receipt Date: 20140616
  Transmission Date: 20141212
  Serious: No
  Sender: FDA-Public Use
  Company Number: US-B.I. PHARMACEUTICALS,INC./RIDGEFIELD-2014-BI-25530BP

PATIENT
  Sex: Female
  Weight: 64 kg

DRUGS (13)
  1. SPIRIVA [Suspect]
     Indication: CHRONIC OBSTRUCTIVE PULMONARY DISEASE
     Dosage: 18 MCG
     Route: 055
     Dates: start: 2006
  2. SYMBICORT [Concomitant]
     Indication: CHRONIC OBSTRUCTIVE PULMONARY DISEASE
     Dosage: STRENGTH: 160 MCG/ 4.5 MCG; DAILY DOSE: 320 MCG/ 9 MCG
     Route: 055
     Dates: start: 2006
  3. SOMA [Concomitant]
     Indication: CERVICOBRACHIAL SYNDROME
     Dosage: 350 MG
     Route: 048
  4. LIPITOR [Concomitant]
     Indication: BLOOD CHOLESTEROL INCREASED
     Dosage: 10 MG
     Route: 048
  5. EVISTA [Concomitant]
     Indication: MINERAL SUPPLEMENTATION
     Dosage: 60 MG
     Route: 048
  6. CALAN [Concomitant]
     Indication: MIGRAINE
     Dosage: 160 MG
     Route: 048
  7. PREVACID [Concomitant]
     Indication: GASTRIC ULCER HAEMORRHAGE
     Dosage: 30 MG
     Route: 048
  8. MIACALCIN [Concomitant]
     Indication: MINERAL SUPPLEMENTATION
     Dosage: FORMULATION: NASAL SPRAY
     Route: 045
  9. WELLBUTRIN [Concomitant]
     Indication: DEPRESSION
     Dosage: 300 MG
     Route: 048
  10. PAXIL [Concomitant]
     Indication: DEPRESSION
     Dosage: 75 MG
     Route: 048
  11. OXYCONTIN [Concomitant]
     Indication: NECK PAIN
     Dosage: 40 MG
     Route: 048
  12. OXYCODONE [Concomitant]
     Indication: NECK PAIN
     Dosage: 10 MG
     Route: 048
  13. ARTHROTEC [Concomitant]
     Indication: ARTHRITIS
     Dosage: 100 MG
     Route: 048

REACTIONS (4)
  - Chronic obstructive pulmonary disease [Not Recovered/Not Resolved]
  - Nasal congestion [Not Recovered/Not Resolved]
  - Dyspnoea [Not Recovered/Not Resolved]
  - Oxygen saturation decreased [Not Recovered/Not Resolved]
